FAERS Safety Report 5694863-X (Version None)
Quarter: 2008Q2

REPORT INFORMATION
  Report Type: 
  Country: None (occurrence: None)
  Receive Date: 20080404
  Receipt Date: 20080110
  Transmission Date: 20081010
  Serious: No
  Sender: FDA-Public Use
  Company Number: A0701007A

PATIENT
  Age: 70 Year
  Sex: Female
  Weight: 42.7 kg

DRUGS (5)
  1. ADVAIR HFA [Suspect]
     Indication: DRUG USE FOR UNKNOWN INDICATION
     Dosage: 1PUFF TWICE PER DAY
     Route: 055
     Dates: start: 20070801
  2. SINGULAIR [Concomitant]
     Dosage: 10MG PER DAY
     Route: 048
  3. LIPITOR [Concomitant]
     Indication: BLOOD CHOLESTEROL INCREASED
     Dosage: 5MG PER DAY
     Route: 048
  4. TOBRAMYCIN [Concomitant]
     Indication: BRONCHIECTASIS
     Dosage: 600MG THREE TIMES PER WEEK
  5. NEBULIZER [Concomitant]

REACTIONS (3)
  - DENTAL CARIES [None]
  - GINGIVAL PAIN [None]
  - ORAL DISCOMFORT [None]
